FAERS Safety Report 5348249-8 (Version None)
Quarter: 2007Q2

REPORT INFORMATION
  Report Type: 
  Country: None (occurrence: None)
  Receive Date: 20070605
  Receipt Date: 20070521
  Transmission Date: 20071010
  Serious: Yes (Death, Other)
  Sender: FDA-Public Use
  Company Number: 013585

PATIENT
  Age: 40 Year
  Sex: Female

DRUGS (2)
  1. CENESTIN [Suspect]
     Indication: OESTRADIOL DECREASED
     Dosage: 0.625 MG
  2. MEDROXYPROGESTERONE ACETATE [Suspect]
     Indication: OESTRADIOL DECREASED

REACTIONS (6)
  - ENDOMETRIAL CANCER METASTATIC [None]
  - LIPID METABOLISM DISORDER [None]
  - METASTASES TO LIVER [None]
  - METASTASES TO LYMPH NODES [None]
  - SUPRAPUBIC PAIN [None]
  - VAGINAL HAEMORRHAGE [None]
